FAERS Safety Report 8482915-0 (Version None)
Quarter: 2012Q3

REPORT INFORMATION
  Report Type: 
  Country: None (occurrence: None)
  Receive Date: 20120702
  Receipt Date: 20120618
  Transmission Date: 20120928
  Serious: Yes (Other)
  Sender: FDA-Public Use
  Company Number: DE-ELI_LILLY_AND_COMPANY-DE201203007747

PATIENT
  Age: 27 Year
  Sex: Female

DRUGS (12)
  1. PROMETHAZINE [Concomitant]
     Dosage: 5 (UNKNOWN UNIT)  EVERY 6 HRS
     Dates: start: 20120210, end: 20120311
  2. MUCOFALK [Concomitant]
     Dosage: UNK UNK, EACH MORNING
     Dates: start: 20120123
  3. CYMBALTA [Suspect]
     Dosage: 60 MG, EACH MORNING
     Route: 048
     Dates: start: 20120127, end: 20120315
  4. ACC ACUTE [Concomitant]
     Dosage: 1 DF, EACH MORNING
     Dates: start: 20120227, end: 20120315
  5. MAGNESIUM-DIASPORAL [Concomitant]
     Dosage: 150 MG, BID
     Dates: start: 20120120
  6. NOVALGIN [Concomitant]
     Dosage: UNK, UNKNOWN
  7. DEPO-PROVERA [Concomitant]
     Dosage: 150 MG, UNK
  8. IBUPROFEN [Concomitant]
     Dosage: 800 MG, SINGLE
     Dates: start: 20120306
  9. IBUPROFEN [Concomitant]
     Dosage: 400 MG, PRN
     Dates: start: 20120305
  10. IBUPROFEN [Concomitant]
     Dosage: 1200 MG, UNKNOWN
  11. PROMETHAZINE [Concomitant]
     Dosage: 10 (UNKNOWN UNIT), EVERY 6 HRS
     Dates: start: 20120315, end: 20120325
  12. METOCLOPRAMIDE [Concomitant]
     Dosage: UNK, PRN

REACTIONS (8)
  - HIGH DENSITY LIPOPROTEIN DECREASED [None]
  - ALANINE AMINOTRANSFERASE INCREASED [None]
  - ACTIVATED PARTIAL THROMBOPLASTIN TIME SHORTENED [None]
  - GAMMA-GLUTAMYLTRANSFERASE INCREASED [None]
  - C-REACTIVE PROTEIN INCREASED [None]
  - GLOMERULAR FILTRATION RATE DECREASED [None]
  - PANCREATITIS [None]
  - WHITE BLOOD CELL COUNT INCREASED [None]
